FAERS Safety Report 25060924 (Version 1)
Quarter: 2025Q1

REPORT INFORMATION
  Report Type: Spontaneous
  Country: DE (occurrence: DE)
  Receive Date: 20250310
  Receipt Date: 20250310
  Transmission Date: 20250409
  Serious: Yes (Other)
  Sender: DR REDDYS
  Company Number: None

PATIENT
  Age: 58 Year
  Sex: Male

DRUGS (11)
  1. RAMIPRIL [Suspect]
     Active Substance: RAMIPRIL
     Indication: Blood pressure increased
     Route: 065
     Dates: end: 202003
  2. SPINRAZA [Suspect]
     Active Substance: NUSINERSEN
     Indication: Spinal muscular atrophy
     Dosage: 16-JAN-15
     Route: 029
     Dates: start: 20190527
  3. SPINRAZA [Suspect]
     Active Substance: NUSINERSEN
     Dosage: 16-JAN-15
     Route: 029
     Dates: start: 20190524
  4. METOPROLOL SUCCINATE [Suspect]
     Active Substance: METOPROLOL SUCCINATE
     Indication: Blood pressure increased
     Route: 065
     Dates: end: 202007
  5. METOPROLOL SUCCINATE [Suspect]
     Active Substance: METOPROLOL SUCCINATE
     Indication: Hypertension
  6. OMEPRAZOLE [Concomitant]
     Active Substance: OMEPRAZOLE
     Indication: Gastritis
     Route: 065
  7. MORPHINE SULFATE [Concomitant]
     Active Substance: MORPHINE SULFATE
     Indication: Pain
     Route: 065
  8. FINASTERIDE [Concomitant]
     Active Substance: FINASTERIDE
     Indication: Prostatic disorder
     Route: 065
  9. AMITRIPTYLINE [Concomitant]
     Active Substance: AMITRIPTYLINE
     Indication: Pain
     Route: 065
  10. AMITRIPTYLINE [Concomitant]
     Active Substance: AMITRIPTYLINE
     Indication: Sleep disorder
  11. COMIRNATY [Concomitant]
     Indication: COVID-19 prophylaxis
     Route: 065

REACTIONS (15)
  - Hypertension [Recovered/Resolved]
  - Motor dysfunction [Recovered/Resolved]
  - Fatigue [Recovered/Resolved]
  - Migraine with aura [Recovered/Resolved]
  - Post lumbar puncture syndrome [Recovered/Resolved]
  - Musculoskeletal disorder [Recovered/Resolved]
  - Eye haemorrhage [Recovered/Resolved]
  - Epistaxis [Recovered/Resolved]
  - Accidental underdose [Recovered/Resolved]
  - Therapeutic response shortened [Recovered/Resolved]
  - Muscular weakness [Not Recovered/Not Resolved]
  - Exertional headache [Not Recovered/Not Resolved]
  - Dizziness [Recovered/Resolved]
  - Asthenia [Unknown]
  - Head discomfort [Unknown]

NARRATIVE: CASE EVENT DATE: 20190924
